FAERS Safety Report 5069168-0 (Version None)
Quarter: 2006Q3

REPORT INFORMATION
  Report Type: 
  Country: None (occurrence: None)
  Receive Date: 20060717
  Receipt Date: 20060315
  Transmission Date: 20061208
  Serious: No
  Sender: FDA-Public Use
  Company Number: 2006000626

PATIENT
  Age: 79 Year
  Sex: Male

DRUGS (2)
  1. TARCEVA [Suspect]
     Indication: PANCREATIC CARCINOMA
     Dosage: SEE IMAGE
     Route: 048
  2. AVASTIN [Concomitant]

REACTIONS (7)
  - AGEUSIA [None]
  - ANOREXIA [None]
  - ASTHENIA [None]
  - DERMATITIS ACNEIFORM [None]
  - DRY SKIN [None]
  - PYREXIA [None]
  - WEIGHT DECREASED [None]
